FAERS Safety Report 16055461 (Version 1)
Quarter: 2019Q1

REPORT INFORMATION
  Report Type: Spontaneous
  Country: JP (occurrence: JP)
  Receive Date: 20190311
  Receipt Date: 20190311
  Transmission Date: 20190418
  Serious: Yes (Hospitalization)
  Sender: FDA-Public Use
  Company Number: JP-TEVA-2019-JP-1023253

PATIENT
  Age: 83 Year
  Sex: Male

DRUGS (8)
  1. RIFAMPICIN [Interacting]
     Active Substance: RIFAMPIN
     Indication: STAPHYLOCOCCAL INFECTION
     Dosage: TREATMENT RECEIVED FOR FOUR YEARS; DISCONTINUED ABOUT TWO MONTHS BEFORE ADMISSION TO THE HOSPITAL
     Route: 065
  2. BENIDIPINE [Concomitant]
     Active Substance: BENIDIPINE
     Dosage: 8 MILLIGRAM DAILY;
     Route: 065
  3. UBIDECARENONE [Concomitant]
     Active Substance: UBIDECARENONE
     Dosage: 30 MILLIGRAM DAILY;
     Route: 065
  4. WARFARIN [Interacting]
     Active Substance: WARFARIN
     Dosage: 2 MILLIGRAM DAILY; PRIOR TO THE START OF RIFAMPICIN
     Route: 065
  5. BISOPROLOL [Concomitant]
     Active Substance: BISOPROLOL
     Dosage: 2.5 MILLIGRAM DAILY;
     Route: 065
  6. WARFARIN [Suspect]
     Active Substance: WARFARIN
     Indication: ANTICOAGULANT THERAPY
     Dosage: 6 MILLIGRAM DAILY; DOSE TRIPLED AFTER THE START OF RIFAMPICIN
     Route: 065
  7. NICORANDIL [Concomitant]
     Active Substance: NICORANDIL
     Dosage: 10 MILLIGRAM DAILY;
     Route: 065
  8. IMIDAPRIL [Concomitant]
     Active Substance: IMIDAPRIL
     Dosage: 5 MILLIGRAM DAILY;
     Route: 065

REACTIONS (5)
  - Haematuria [Unknown]
  - Drug interaction [Unknown]
  - Pulmonary alveolar haemorrhage [Recovered/Resolved]
  - International normalised ratio increased [Recovered/Resolved]
  - Respiratory distress [Recovering/Resolving]
